FAERS Safety Report 17001684 (Version 3)
Quarter: 2020Q4

REPORT INFORMATION
  Report Type: Report from Study
  Country: DO (occurrence: DO)
  Receive Date: 20191106
  Receipt Date: 20201201
  Transmission Date: 20210113
  Serious: Yes (Other)
  Sender: FDA-Public Use
  Company Number: PHHY2019DO126367

PATIENT
  Sex: Female

DRUGS (2)
  1. SCAPHO [Suspect]
     Active Substance: SECUKINUMAB
     Indication: PRODUCT USED FOR UNKNOWN INDICATION
     Dosage: 150 MG, UNK
     Route: 065
  2. SCAPHO [Suspect]
     Active Substance: SECUKINUMAB
     Dosage: 300 MG, QMO
     Route: 058
     Dates: start: 20180903

REACTIONS (14)
  - Pain of skin [Unknown]
  - Pruritus [Unknown]
  - Skin plaque [Unknown]
  - Gastric ulcer [Unknown]
  - Gastritis [Unknown]
  - Urticaria [Unknown]
  - Papule [Unknown]
  - Anxiety [Unknown]
  - Rash [Unknown]
  - Vitiligo [Unknown]
  - Psoriasis [Unknown]
  - Blood glucose increased [Unknown]
  - Stress [Unknown]
  - Fear of injection [Unknown]
